FAERS Safety Report 24083875 (Version 1)
Quarter: 2024Q3

REPORT INFORMATION
  Report Type: Spontaneous
  Country: AU (occurrence: AU)
  Receive Date: 20240712
  Receipt Date: 20240712
  Transmission Date: 20241016
  Serious: Yes (Other)
  Sender: AMERICAN REGENT
  Company Number: AU-AMERICAN REGENT INC-2024002633

PATIENT
  Age: 86 Year

DRUGS (1)
  1. FERINJECT [Suspect]
     Active Substance: FERRIC CARBOXYMALTOSE
     Indication: Product used for unknown indication
     Dosage: UNK, SCHEDULED TO RECEIVED THE 10 ML (500 MG). PATIENT HAD LESS THAN 10 MLS OF IRON INFUSION. IRON I
     Dates: start: 20240418, end: 20240418

REACTIONS (3)
  - Oxygen saturation decreased [Recovered/Resolved]
  - Heart rate increased [Recovered/Resolved]
  - Tachycardia [Recovered/Resolved]

NARRATIVE: CASE EVENT DATE: 20240418
